FAERS Safety Report 7131126-X (Version None)
Quarter: 2010Q4

REPORT INFORMATION
  Report Type: 
  Country: None (occurrence: None)
  Receive Date: 20101201
  Receipt Date: 20101118
  Transmission Date: 20110411
  Serious: Yes (Congenital Anomaly, Other)
  Sender: FDA-Public Use
  Company Number: GXKR2010GB10043

PATIENT
  Sex: Male
  Weight: 7.4 kg

DRUGS (23)
  1. DIHYDROCODEINE (NGX) [Suspect]
     Route: 064
  2. DIHYDROCODEINE (NGX) [Suspect]
     Dosage: MATERNAL DOSE. 30 MG, QD TO TID
     Route: 064
     Dates: start: 20090923
  3. PROPRANOLOL [Suspect]
     Route: 064
  4. SERTRALINE (NGX) [Suspect]
     Route: 064
  5. LANSOPRAZOLE [Suspect]
     Route: 064
  6. LAMOTRIGINE [Suspect]
     Dosage: 400 MG, BID (MATERNAL DOSE)
     Route: 064
     Dates: start: 20040101
  7. ARIPIPRAZOLE [Suspect]
     Route: 064
  8. ARIPIPRAZOLE [Suspect]
     Dosage: MATERNAL DOSE: 30 MG, UNK
     Route: 064
     Dates: start: 20100205
  9. NORETHISTERONE [Suspect]
     Route: 064
  10. NORETHISTERONE [Suspect]
     Dosage: MATERNAL DOSE. 350 UG, UNK
     Route: 064
     Dates: start: 20090923
  11. AMOXICILLIN [Concomitant]
  12. BETAMETHASONE [Concomitant]
  13. CHLORAMPHENICOL [Concomitant]
  14. CLOBAZAM [Concomitant]
  15. AMPICILLIN SODIUM/SULBACTAM SODIUM [Concomitant]
  16. DICLOFENAC [Concomitant]
  17. FOLIC ACID [Concomitant]
  18. LACTULOSE [Concomitant]
  19. LIDOCAINE HYDROCHLORIDE IN PLASTIC CONTAINER [Concomitant]
  20. MICONAZOLE [Concomitant]
  21. NUTRITION SUPPLEMENTS [Concomitant]
  22. OMEPRAZOLE [Concomitant]
  23. PROCHLORPERAZINE [Concomitant]

REACTIONS (5)
  - ATRIAL SEPTAL DEFECT [None]
  - DRUG EXPOSURE DURING PREGNANCY [None]
  - LIVE BIRTH [None]
  - PREMATURE BABY [None]
  - VENTRICULAR SEPTAL DEFECT [None]
